FAERS Safety Report 8033088-X (Version None)
Quarter: 2012Q1

REPORT INFORMATION
  Report Type: 
  Country: None (occurrence: None)
  Receive Date: 20120110
  Receipt Date: 20111227
  Transmission Date: 20120608
  Serious: Yes (Hospitalization, Other)
  Sender: FDA-Public Use
  Company Number: JP-ABBOTT-11P-087-0857796-00

PATIENT
  Sex: Female
  Weight: 47.7 kg

DRUGS (9)
  1. HUMIRA [Suspect]
     Dates: start: 20101202
  2. MESALAMINE [Concomitant]
     Indication: CROHN'S DISEASE
     Route: 048
  3. BIFIDOBACTERIUM [Concomitant]
     Indication: CROHN'S DISEASE
     Route: 048
  4. CIDEFERRON [Concomitant]
     Indication: ANAEMIA
     Dates: start: 20101122, end: 20101210
  5. MIXED AMINO ACID_CARBOHYDRATE_ELECTROLYTE_VITAMIN COMBINED DRUG [Concomitant]
     Indication: PRODUCT USED FOR UNKNOWN INDICATION
     Dates: start: 20101126, end: 20101210
  6. RABEPRAZOLE SODIUM [Concomitant]
     Indication: GASTRITIS PROPHYLAXIS
     Route: 048
  7. HUMIRA [Suspect]
     Dates: start: 20101119, end: 20101119
  8. HUMIRA [Suspect]
     Indication: CROHN'S DISEASE
     Route: 058
     Dates: start: 20101108, end: 20101108
  9. AZATHIOPRINE [Concomitant]
     Indication: CROHN'S DISEASE
     Route: 048

REACTIONS (2)
  - CROHN'S DISEASE [None]
  - INTESTINAL OBSTRUCTION [None]
